FAERS Safety Report 10227922 (Version 1)
Quarter: 2014Q2

REPORT INFORMATION
  Report Type: Spontaneous
  Country: US (occurrence: None)
  Receive Date: 20140609
  Receipt Date: 20140609
  Transmission Date: 20141212
  Serious: No
  Sender: FDA-Public Use
  Company Number: None

PATIENT
  Age: 53 Year
  Sex: Male
  Weight: 104.33 kg

DRUGS (1)
  1. INVOKANA [Suspect]
     Indication: TYPE 2 DIABETES MELLITUS
     Dosage: 1 ONCE DAILY TAKEN BY MOUTH
     Route: 048

REACTIONS (8)
  - Peripheral swelling [None]
  - Joint swelling [None]
  - Pruritus [None]
  - Pruritus genital [None]
  - Urinary incontinence [None]
  - Micturition urgency [None]
  - Urine output increased [None]
  - Pollakiuria [None]
